FAERS Safety Report 9898777 (Version 2)
Quarter: 2014Q1

REPORT INFORMATION
  Report Type: Spontaneous
  Country: US (occurrence: US)
  Receive Date: 20140214
  Receipt Date: 20140214
  Transmission Date: 20141002
  Serious: No
  Sender: FDA-Public Use
  Company Number: US-GILEAD-2011-0044411

PATIENT
  Sex: Female

DRUGS (3)
  1. LETAIRIS [Suspect]
     Indication: PULMONARY ARTERIAL HYPERTENSION
     Dosage: 10 MG, UNK
     Route: 048
     Dates: start: 20070825
  2. SEROQUEL [Concomitant]
  3. CLONAZEPAM [Concomitant]

REACTIONS (4)
  - Syncope [Unknown]
  - Fall [Unknown]
  - Head injury [Unknown]
  - Weight decreased [Unknown]
